FAERS Safety Report 10043333 (Version 2)
Quarter: 2014Q2

REPORT INFORMATION
  Report Type: Spontaneous
  Country: GB (occurrence: GB)
  Receive Date: 20140328
  Receipt Date: 20140408
  Transmission Date: 20141212
  Serious: Yes (Death)
  Sender: FDA-Public Use
  Company Number: GB-TEVA-470847ISR

PATIENT
  Sex: 0

DRUGS (3)
  1. ETOPOSIDE [Suspect]
     Dates: start: 20140312, end: 20140314
  2. CARBOPLATIN [Concomitant]
     Dates: start: 20140312, end: 20140314
  3. BAXTER SODIUM CHLORIDE 0.9% [Concomitant]
     Dates: start: 20140312, end: 20140314

REACTIONS (1)
  - Death [Fatal]
